FAERS Safety Report 14110889 (Version 1)
Quarter: 2017Q4

REPORT INFORMATION
  Report Type: Spontaneous
  Country: US (occurrence: US)
  Receive Date: 20171020
  Receipt Date: 20171020
  Transmission Date: 20180321
  Serious: Yes (Death)
  Sender: FDA-Public Use
  Company Number: US-PFIZER INC-2017453998

PATIENT
  Age: 79 Year
  Sex: Female
  Weight: 47 kg

DRUGS (1)
  1. IBRANCE [Suspect]
     Active Substance: PALBOCICLIB
     Indication: BREAST CANCER
     Dosage: 100 MG, CYCLIC (FOR 21 DAYS THEN 7 DAYS OFF)
     Dates: start: 201705

REACTIONS (1)
  - Death [Fatal]
